FAERS Safety Report 20077646 (Version 2)
Quarter: 2021Q4

REPORT INFORMATION
  Report Type: Report from Study
  Country: CA (occurrence: CA)
  Receive Date: 20211116
  Receipt Date: 20211123
  Transmission Date: 20220303
  Serious: Yes (Other)
  Sender: FDA-Public Use
  Company Number: CA-SAMSUNG BIOEPIS-SB-2021-26742

PATIENT
  Age: 75 Year
  Sex: Male
  Weight: 66.8 kg

DRUGS (1)
  1. RENFLEXIS [Suspect]
     Active Substance: INFLIXIMAB-ABDA
     Indication: Rheumatoid arthritis
     Dosage: VIAL
     Route: 042
     Dates: start: 20210528, end: 20210929

REACTIONS (3)
  - Rheumatoid arthritis [Unknown]
  - Pyrexia [Recovered/Resolved]
  - Chills [Not Recovered/Not Resolved]
